FAERS Safety Report 4655053-2 (Version None)
Quarter: 2005Q2

REPORT INFORMATION
  Report Type: 
  Country: None (occurrence: None)
  Receive Date: 20050504
  Receipt Date: 20050421
  Transmission Date: 20051028
  Serious: Yes (Other)
  Sender: FDA-Public Use
  Company Number: 2005067704

PATIENT
  Sex: Female

DRUGS (3)
  1. CABERGOLINE [Suspect]
     Indication: RESTLESS LEGS SYNDROME
     Dosage: 1 MG (1 MG, 1 IN 1 D)
     Dates: start: 20040901
  2. PROPRANOLOL HYDROCHLORIDE [Concomitant]
  3. CELECOXIB [Concomitant]

REACTIONS (2)
  - ALOPECIA [None]
  - HYSTERECTOMY [None]
